FAERS Safety Report 14842910 (Version 1)
Quarter: 2018Q2

REPORT INFORMATION
  Report Type: Spontaneous
  Country: BR (occurrence: BR)
  Receive Date: 20180503
  Receipt Date: 20180503
  Transmission Date: 20180711
  Serious: Yes (Hospitalization)
  Sender: FDA-Public Use
  Company Number: BR-PFIZER INC-2018141557

PATIENT
  Age: 66 Year
  Sex: Female

DRUGS (4)
  1. PURAN [Concomitant]
     Active Substance: LEVOTHYROXINE SODIUM
     Dosage: UNK
  2. LORAX [Suspect]
     Active Substance: LORAZEPAM
     Indication: ANXIETY
     Dosage: 2 MG (1 TABLET), DAILY AT 23 PM
     Dates: start: 1993
  3. LORAX [Suspect]
     Active Substance: LORAZEPAM
     Indication: SOMNOLENCE
     Dosage: UNK
     Dates: start: 20180404
  4. MIRTAZAPINE. [Concomitant]
     Active Substance: MIRTAZAPINE
     Dosage: UNK

REACTIONS (3)
  - Lung neoplasm [Recovered/Resolved]
  - Expired product administered [Recovered/Resolved]
  - Drug effect incomplete [Recovered/Resolved]

NARRATIVE: CASE EVENT DATE: 2008
